FAERS Safety Report 10247243 (Version 1)
Quarter: 2014Q2

REPORT INFORMATION
  Report Type: Spontaneous
  Country: US (occurrence: US)
  Receive Date: 20140619
  Receipt Date: 20140619
  Transmission Date: 20141212
  Serious: Yes (Hospitalization)
  Sender: FDA-Public Use
  Company Number: US-GLAXOSMITHKLINE-A1077319A

PATIENT
  Age: 64 Year
  Sex: Female

DRUGS (3)
  1. VENTOLIN [Suspect]
     Indication: DYSPNOEA
     Dosage: 2PUFF TWICE PER DAY
     Route: 055
     Dates: start: 2011
  2. TRIMETAZIDINE [Concomitant]
  3. PREDNISONE [Concomitant]

REACTIONS (1)
  - Bronchitis [Recovering/Resolving]
